FAERS Safety Report 9900913 (Version 1)
Quarter: 2014Q1

REPORT INFORMATION
  Report Type: Report from Study
  Country: US (occurrence: US)
  Receive Date: 20140217
  Receipt Date: 20140217
  Transmission Date: 20141002
  Serious: No
  Sender: FDA-Public Use
  Company Number: US-ABBVIE-13P-163-1078607-00

PATIENT
  Age: 45 Year
  Sex: Male
  Weight: 83.99 kg

DRUGS (3)
  1. SIMCOR [Suspect]
     Indication: CAROTID ARTERY OCCLUSION
     Dates: start: 201303
  2. CLARITIN [Concomitant]
     Indication: PRODUCT USED FOR UNKNOWN INDICATION
  3. ZYRTEC [Concomitant]
     Indication: PRODUCT USED FOR UNKNOWN INDICATION

REACTIONS (2)
  - Feeling hot [Recovered/Resolved]
  - Nausea [Recovered/Resolved]
